FAERS Safety Report 7771545-1 (Version None)
Quarter: 2011Q3

REPORT INFORMATION
  Report Type: 
  Country: None (occurrence: None)
  Receive Date: 20110922
  Receipt Date: 20100810
  Transmission Date: 20111222
  Serious: No
  Sender: FDA-Public Use
  Company Number: US-ASTRAZENECA-2008UW04300

PATIENT
  Age: 13498 Day
  Sex: Female
  Weight: 113.4 kg

DRUGS (10)
  1. CELEXA [Concomitant]
     Dosage: 20-40 MG
     Route: 065
     Dates: start: 20020823
  2. SEROQUEL [Suspect]
     Dosage: 25-100 MG
     Route: 048
     Dates: start: 20040707
  3. TRAZODONE HCL [Concomitant]
     Route: 065
     Dates: start: 20020926
  4. LEXAPRO [Concomitant]
     Dosage: 20-60 MG
     Route: 065
     Dates: start: 20050325
  5. SEROQUEL [Suspect]
     Indication: SLEEP DISORDER
     Dosage: 25 MG TO 100 MG
     Route: 048
     Dates: start: 20040415, end: 20071213
  6. SEROQUEL [Suspect]
     Indication: OBSESSIVE-COMPULSIVE DISORDER
     Dosage: 25 MG TO 100 MG
     Route: 048
     Dates: start: 20040415, end: 20071213
  7. SEROQUEL [Suspect]
     Indication: ANXIETY
     Dosage: 25 MG TO 100 MG
     Route: 048
     Dates: start: 20040415, end: 20071213
  8. SEROQUEL [Suspect]
     Dosage: 25-100 MG
     Route: 048
     Dates: start: 20040707
  9. BUSPIRONE HCL [Concomitant]
     Route: 065
     Dates: start: 20031006
  10. SEROQUEL [Suspect]
     Dosage: 25-100 MG
     Route: 048
     Dates: start: 20040707

REACTIONS (8)
  - BLOOD CHOLESTEROL INCREASED [None]
  - BLOOD TRIGLYCERIDES INCREASED [None]
  - DIABETIC COMPLICATION [None]
  - HYPERLIPIDAEMIA [None]
  - DIABETES MELLITUS [None]
  - OBESITY [None]
  - TYPE 2 DIABETES MELLITUS [None]
  - WEIGHT INCREASED [None]
